FAERS Safety Report 10216476 (Version 1)
Quarter: 2014Q2

REPORT INFORMATION
  Report Type: Spontaneous
  Country: US (occurrence: None)
  Receive Date: 20140603
  Receipt Date: 20140603
  Transmission Date: 20141212
  Serious: No
  Sender: FDA-Public Use
  Company Number: None

PATIENT
  Age: 44 Year
  Sex: 0

DRUGS (1)
  1. HYDROCORTISONE VALERATE [Suspect]

REACTIONS (3)
  - Application site pain [None]
  - Back pain [None]
  - Groin pain [None]
